FAERS Safety Report 24969804 (Version 1)
Quarter: 2025Q1

REPORT INFORMATION
  Report Type: Spontaneous
  Country: US (occurrence: None)
  Receive Date: 20250213
  Receipt Date: 20250213
  Transmission Date: 20250408
  Serious: Yes (Death)
  Sender: FDA-CTU
  Company Number: None

PATIENT
  Age: 69 Year
  Sex: Male
  Weight: 78.6 kg

DRUGS (2)
  1. YESCARTA [Suspect]
     Active Substance: AXICABTAGENE CILOLEUCEL
     Indication: Diffuse large B-cell lymphoma
     Route: 042
     Dates: start: 20250206, end: 20250206
  2. YESCARTA [Concomitant]
     Active Substance: AXICABTAGENE CILOLEUCEL
     Dates: start: 20250206, end: 20250206

REACTIONS (10)
  - Lymphocyte adoptive therapy [None]
  - Cytokine release syndrome [None]
  - Neutropenia [None]
  - Haemophagocytic lymphohistiocytosis [None]
  - Supraventricular tachycardia [None]
  - Pulseless electrical activity [None]
  - Palpitations [None]
  - Dizziness [None]
  - Blood pressure decreased [None]
  - Lactic acidosis [None]

NARRATIVE: CASE EVENT DATE: 20250209
